FAERS Safety Report 5343477-X (Version None)
Quarter: 2007Q2

REPORT INFORMATION
  Report Type: 
  Country: None (occurrence: None)
  Receive Date: 20070604
  Receipt Date: 20070529
  Transmission Date: 20071010
  Serious: Yes (Other)
  Sender: FDA-Public Use
  Company Number: PHEH2007US03980

PATIENT
  Age: 59 Year
  Sex: Female

DRUGS (6)
  1. ZELNORM [Suspect]
     Indication: IRRITABLE BOWEL SYNDROME
     Dosage: 6 MG, BID
     Dates: start: 20061001, end: 20070401
  2. IMDUR [Concomitant]
     Dosage: UNK, UNK
     Dates: start: 20040101
  3. CARDIZEM [Concomitant]
     Dates: start: 20040101
  4. PLAVIX [Concomitant]
     Dates: start: 20040101
  5. ASPIRIN [Concomitant]
     Dates: start: 20040101
  6. MIRALAX [Concomitant]
     Dates: start: 20061001

REACTIONS (7)
  - ANGINA PECTORIS [None]
  - ANGIOPLASTY [None]
  - CATHETERISATION CARDIAC [None]
  - HEART RATE INCREASED [None]
  - MUSCLE SPASMS [None]
  - STENT PLACEMENT [None]
  - VASCULAR OCCLUSION [None]
